FAERS Safety Report 21148258 (Version 3)
Quarter: 2022Q3

REPORT INFORMATION
  Report Type: Spontaneous
  Country: FR (occurrence: FR)
  Receive Date: 20220729
  Receipt Date: 20220809
  Transmission Date: 20221027
  Serious: Yes (Hospitalization, Other)
  Sender: FDA-Public Use
  Company Number: None

PATIENT
  Age: 72 Year
  Sex: Male
  Weight: 72 kg

DRUGS (4)
  1. OPDIVO [Suspect]
     Active Substance: NIVOLUMAB
     Indication: Metastatic malignant melanoma
     Dosage: 2 CYCLES
     Route: 042
     Dates: start: 20220510, end: 20220531
  2. OPDIVO [Suspect]
     Active Substance: NIVOLUMAB
     Dosage: 31 CYCLES
     Route: 042
     Dates: start: 20190618, end: 20220412
  3. YERVOY [Suspect]
     Active Substance: IPILIMUMAB
     Indication: Metastatic malignant melanoma
     Dosage: 2 CYCLES
     Route: 042
     Dates: start: 20220510, end: 20220531
  4. PRETERAX [INDAPAMIDE;PERINDOPRIL ERBUMINE] [Concomitant]
     Indication: Hypertension
     Dosage: 1 CP/J,?2 MG/0,625 MG.
     Route: 065

REACTIONS (4)
  - Cholestatic liver injury [Recovering/Resolving]
  - Hyperthyroidism [Not Recovered/Not Resolved]
  - Colitis [Not Recovered/Not Resolved]
  - Off label use [Unknown]

NARRATIVE: CASE EVENT DATE: 20220603
